FAERS Safety Report 4977867-1 (Version None)
Quarter: 2006Q2

REPORT INFORMATION
  Report Type: 
  Country: None (occurrence: None)
  Receive Date: 20060420
  Receipt Date: 20060411
  Transmission Date: 20061013
  Serious: Yes (Other)
  Sender: FDA-Public Use
  Company Number: AT-GLAXOSMITHKLINE-B0420676A

PATIENT
  Sex: Male

DRUGS (2)
  1. AVANDIA [Suspect]
     Route: 048
  2. UNSPECIFIED MEDICATION [Concomitant]
     Indication: DRUG USE FOR UNKNOWN INDICATION
     Route: 065

REACTIONS (4)
  - ANAEMIA [None]
  - ASTHENIA [None]
  - NEUROPATHY [None]
  - OEDEMA [None]
